FAERS Safety Report 7399229-2 (Version None)
Quarter: 2011Q2

REPORT INFORMATION
  Report Type: 
  Country: None (occurrence: None)
  Receive Date: 20110407
  Receipt Date: 20110331
  Transmission Date: 20111010
  Serious: Yes (Other)
  Sender: FDA-Public Use
  Company Number: US-US-EMD SERONO, INC.-7051255

PATIENT
  Sex: Male
  Weight: 79 kg

DRUGS (3)
  1. COMPAZINE [Concomitant]
     Indication: PREMEDICATION
  2. REBIF [Suspect]
     Indication: MULTIPLE SCLEROSIS
     Route: 058
     Dates: start: 20060621
  3. TYLENOL PM [Concomitant]
     Indication: PREMEDICATION

REACTIONS (1)
  - DIABETES MELLITUS [None]
